FAERS Safety Report 8162585-1 (Version None)
Quarter: 2012Q1

REPORT INFORMATION
  Report Type: 
  Country: None (occurrence: None)
  Receive Date: 20120224
  Receipt Date: 20120214
  Transmission Date: 20120608
  Serious: Yes (Hospitalization, Disabling)
  Sender: FDA-Public Use
  Company Number: JP-JNJFOC-20110811625

PATIENT
  Age: 73 Year
  Sex: Female
  Weight: 89 kg

DRUGS (14)
  1. PREDONISOLONE [Concomitant]
     Indication: RHEUMATOID ARTHRITIS
  2. ONEALFA [Concomitant]
     Indication: OSTEOPOROSIS
  3. VIVIANT [Concomitant]
     Indication: OSTEOPOROSIS
  4. METHOTREXATE [Suspect]
     Indication: RHEUMATOID ARTHRITIS
     Route: 048
     Dates: start: 20110712, end: 20110716
  5. REMICADE [Suspect]
     Route: 042
     Dates: start: 20110215
  6. REMICADE [Suspect]
     Route: 042
     Dates: start: 20090804
  7. ASASURFAN [Concomitant]
     Indication: RHEUMATOID ARTHRITIS
     Dates: start: 20060511
  8. SIMVASTATIN [Concomitant]
     Indication: HYPERLIPIDAEMIA
     Dates: end: 20110831
  9. REMICADE [Suspect]
     Route: 042
     Dates: start: 20081111
  10. REMICADE [Suspect]
     Route: 042
     Dates: start: 20100831
  11. OSTELUC [Concomitant]
     Indication: RHEUMATOID ARTHRITIS
     Dates: start: 20070712, end: 20110831
  12. FOLIC ACID [Concomitant]
     Indication: RHEUMATOID ARTHRITIS
     Dates: start: 20070410, end: 20110716
  13. REBAMIPIDE [Concomitant]
     Indication: GASTRITIS
     Dates: end: 20110831
  14. REMICADE [Suspect]
     Indication: RHEUMATOID ARTHRITIS
     Dosage: 19TH INFLIXIMAB DOSE
     Route: 042
     Dates: start: 20110606

REACTIONS (2)
  - LYMPHOMA [None]
  - PATHOLOGICAL FRACTURE [None]
